FAERS Safety Report 13959430 (Version 2)
Quarter: 2017Q3

REPORT INFORMATION
  Report Type: Spontaneous
  Country: PL (occurrence: PL)
  Receive Date: 20170912
  Receipt Date: 20170919
  Transmission Date: 20171128
  Serious: Yes (Death, Hospitalization)
  Sender: FDA-Public Use
  Company Number: PL-ROCHE-1984941

PATIENT
  Age: 86 Year
  Sex: Female

DRUGS (5)
  1. GAZYVARO [Suspect]
     Active Substance: OBINUTUZUMAB
     Indication: CHRONIC LYMPHOCYTIC LEUKAEMIA
     Dosage: FREQUENCY: CYCLE
     Route: 042
     Dates: start: 20170710, end: 20170710
  2. DEXAVEN [Concomitant]
     Active Substance: DEXAMETHASONE
     Indication: CHRONIC LYMPHOCYTIC LEUKAEMIA
     Dosage: FREQUENCY: 1
     Route: 042
     Dates: start: 20170710, end: 20170710
  3. CLEMASTINE [Concomitant]
     Active Substance: CLEMASTINE
     Indication: CHRONIC LYMPHOCYTIC LEUKAEMIA
     Dosage: DOSE: 1 AMPULEL FREQUENCY: 1
     Route: 042
     Dates: start: 20170710, end: 20170710
  4. LEUKERAN [Concomitant]
     Active Substance: CHLORAMBUCIL
     Indication: CHRONIC LYMPHOCYTIC LEUKAEMIA
     Dosage: FREQUENCY: 1
     Route: 048
     Dates: start: 20170710, end: 20170710
  5. PERFALGAN [Concomitant]
     Active Substance: ACETAMINOPHEN
     Indication: CHRONIC LYMPHOCYTIC LEUKAEMIA
     Dosage: FREQUENCY: 1
     Route: 065
     Dates: start: 20170710, end: 20170710

REACTIONS (2)
  - Infection [Fatal]
  - Pneumonia [Unknown]
